FAERS Safety Report 10429877 (Version 1)
Quarter: 2014Q3

REPORT INFORMATION
  Report Type: Spontaneous
  Country: US (occurrence: None)
  Receive Date: 20140805
  Receipt Date: 20140805
  Transmission Date: 20150326
  Serious: Yes (Hospitalization)
  Sender: FDA-Public Use
  Company Number: POIO581201400005

PATIENT
  Age: 36 Year
  Sex: Male

DRUGS (2)
  1. AZASAN [Suspect]
     Active Substance: AZATHIOPRINE
     Indication: CROHN^S DISEASE
     Route: 048
     Dates: start: 2010
  2. AZASAN [Suspect]
     Active Substance: AZATHIOPRINE
     Indication: RENAL TRANSPLANT
     Route: 048
     Dates: start: 2010

REACTIONS (1)
  - Pneumonia [None]

NARRATIVE: CASE EVENT DATE: 20140312
